FAERS Safety Report 7069997-8 (Version None)
Quarter: 2010Q4

REPORT INFORMATION
  Report Type: 
  Country: None (occurrence: None)
  Receive Date: 20101028
  Receipt Date: 20100726
  Transmission Date: 20110411
  Serious: No
  Sender: FDA-Public Use
  Company Number: US-WYE-H16474210

PATIENT
  Sex: Female
  Weight: 99.88 kg

DRUGS (2)
  1. PROTONIX [Suspect]
     Indication: ULCER
     Route: 048
     Dates: start: 20100723, end: 20100726
  2. BENADRYL [Concomitant]

REACTIONS (6)
  - CONDITION AGGRAVATED [None]
  - EAR PAIN [None]
  - NAUSEA [None]
  - PRESYNCOPE [None]
  - PRURITUS [None]
  - SKIN DISORDER [None]
